FAERS Safety Report 5098220-9 (Version None)
Quarter: 2006Q3

REPORT INFORMATION
  Report Type: 
  Country: None (occurrence: None)
  Receive Date: 20060906
  Receipt Date: 20060602
  Transmission Date: 20061208
  Serious: No
  Sender: FDA-Public Use
  Company Number: US-GLAXOSMITHKLINE-A0608136A

PATIENT
  Sex: Female

DRUGS (4)
  1. REQUIP [Suspect]
     Indication: DRUG USE FOR UNKNOWN INDICATION
     Route: 065
     Dates: start: 20060201
  2. METOPROLOL SUCCINATE [Concomitant]
     Indication: BLOOD PRESSURE
  3. HYZAAR [Concomitant]
     Indication: BLOOD PRESSURE
  4. NORVASC [Concomitant]
     Indication: BLOOD PRESSURE

REACTIONS (1)
  - ALOPECIA [None]
